FAERS Safety Report 22315972 (Version 2)
Quarter: 2023Q2

REPORT INFORMATION
  Report Type: Spontaneous
  Country: US (occurrence: US)
  Receive Date: 20230512
  Receipt Date: 20230519
  Transmission Date: 20230722
  Serious: Yes (Hospitalization, Other)
  Sender: FDA-Public Use
  Company Number: US-UNITED THERAPEUTICS-UNT-2023-009440

PATIENT
  Age: 66 Year
  Sex: Male
  Weight: 141.95 kg

DRUGS (3)
  1. REMODULIN [Suspect]
     Active Substance: TREPROSTINIL
     Indication: Pulmonary arterial hypertension
     Dosage: 0.002 ?G/KG (SELF-FILLED CASSETTE WITH 1.7 ML; RATE OF 17 MCL/HOUR), CONTINUING
     Route: 058
     Dates: start: 202303
  2. REMODULIN [Suspect]
     Active Substance: TREPROSTINIL
     Dosage: UNK, CONTINUING
     Route: 058
     Dates: start: 20230323
  3. TADALAFIL [Concomitant]
     Active Substance: TADALAFIL
     Indication: Product used for unknown indication
     Dosage: UNK
     Route: 065

REACTIONS (11)
  - Oedema peripheral [Unknown]
  - Respiratory distress [Unknown]
  - Headache [Unknown]
  - Dyspnoea [Unknown]
  - Oxygen saturation decreased [Unknown]
  - Drug intolerance [Unknown]
  - Oedema [Unknown]
  - Infusion site pruritus [Unknown]
  - Arthralgia [Unknown]
  - Decreased appetite [Unknown]
  - Pain [Unknown]

NARRATIVE: CASE EVENT DATE: 20230301
